FAERS Safety Report 5467036-3 (Version None)
Quarter: 2007Q3

REPORT INFORMATION
  Report Type: 
  Country: None (occurrence: None)
  Receive Date: 20070925
  Receipt Date: 20070920
  Transmission Date: 20080115
  Serious: Yes (Hospitalization)
  Sender: FDA-Public Use
  Company Number: B0481927A

PATIENT
  Age: 64 Year
  Sex: Female

DRUGS (10)
  1. ZANTAC [Suspect]
     Dosage: 150MG PER DAY
     Route: 065
     Dates: start: 20070613, end: 20070628
  2. TAGAMET [Suspect]
     Indication: DUODENAL ULCER
     Dosage: 400MG PER DAY
     Dates: start: 20070629, end: 20070702
  3. OMEPRAL [Concomitant]
     Indication: SEPSIS
     Dosage: 600MG PER DAY
     Route: 065
     Dates: start: 20070612
  4. CIPROFLOXACIN [Concomitant]
     Route: 065
     Dates: start: 20070522, end: 20070615
  5. VANCOMYCIN [Concomitant]
     Indication: SEPSIS
     Route: 065
     Dates: start: 20070526
  6. PRODIF [Concomitant]
     Indication: SEPSIS
     Dosage: 400MG PER DAY
     Route: 065
     Dates: start: 20070613, end: 20070618
  7. GRAN [Concomitant]
     Indication: AGRANULOCYTOSIS
     Dosage: 75MCG PER DAY
     Route: 058
     Dates: start: 20070613, end: 20070626
  8. MAXIPIME [Concomitant]
     Indication: SEPSIS
     Dosage: 2G PER DAY
     Route: 065
     Dates: start: 20070615, end: 20070618
  9. PREDONINE [Concomitant]
     Dosage: 20MG PER DAY
     Route: 065
     Dates: start: 20070620
  10. HYDROCORTONE [Concomitant]
     Indication: ADRENAL INSUFFICIENCY
     Dosage: 100MG PER DAY
     Route: 065
     Dates: start: 20070626, end: 20070627

REACTIONS (6)
  - ADRENAL INSUFFICIENCY [None]
  - C-REACTIVE PROTEIN INCREASED [None]
  - CONDITION AGGRAVATED [None]
  - DUODENAL ULCER [None]
  - HYPONATRAEMIA [None]
  - PYREXIA [None]
